FAERS Safety Report 5494452-6 (Version None)
Quarter: 2007Q4

REPORT INFORMATION
  Report Type: 
  Country: None (occurrence: None)
  Receive Date: 20071024
  Receipt Date: 20071017
  Transmission Date: 20080405
  Serious: Yes (Hospitalization)
  Sender: FDA-Public Use
  Company Number: US-JNJFOC-20071005069

PATIENT
  Age: 37 Year
  Sex: Female

DRUGS (2)
  1. TYLENOL SINUS CONGESTION AND PAIN DAYTIME [Suspect]
     Indication: SINUS DISORDER
  2. TYLENOL SINUS CONGESTION AND PAIN DAYTIME [Suspect]
     Indication: MULTIPLE ALLERGIES

REACTIONS (1)
  - CEREBROVASCULAR ACCIDENT [None]
